FAERS Safety Report 17196032 (Version 1)
Quarter: 2019Q4

REPORT INFORMATION
  Report Type: Spontaneous
  Country: US (occurrence: US)
  Receive Date: 20191203
  Receipt Date: 20191203
  Transmission Date: 20200122
  Serious: Yes (Hospitalization)
  Sender: FDA-Public Use
  Company Number: None

PATIENT
  Age: 47 Year
  Sex: Male

DRUGS (1)
  1. REVLIMID [Suspect]
     Active Substance: LENALIDOMIDE
     Indication: MANTLE CELL LYMPHOMA
     Route: 048
     Dates: start: 20190214, end: 20191117

REACTIONS (5)
  - Septic shock [None]
  - Haemoglobin decreased [None]
  - Pseudomonas infection [None]
  - Diarrhoea [None]
  - Febrile neutropenia [None]

NARRATIVE: CASE EVENT DATE: 20191116
